FAERS Safety Report 9272522 (Version 2)
Quarter: 2013Q3

REPORT INFORMATION
  Report Type: Spontaneous
  Country: US (occurrence: US)
  Receive Date: 20130506
  Receipt Date: 20130731
  Transmission Date: 20140515
  Serious: Yes (Other)
  Sender: FDA-Public Use
  Company Number: US-GLAXOSMITHKLINE-A1022540A

PATIENT
  Age: 60 Year
  Sex: Female

DRUGS (2)
  1. TYKERB [Suspect]
     Indication: BREAST CANCER
     Dosage: 1000MG PER DAY
     Route: 048
  2. XELODA [Suspect]
     Indication: BREAST CANCER
     Dosage: 500MG UNKNOWN
     Route: 065

REACTIONS (6)
  - Brain neoplasm malignant [Unknown]
  - Craniotomy [Unknown]
  - Breast cancer metastatic [Unknown]
  - Nail disorder [Unknown]
  - Erythema [Unknown]
  - Inflammation [Unknown]
